FAERS Safety Report 6781545-6 (Version None)
Quarter: 2010Q2

REPORT INFORMATION
  Report Type: 
  Country: None (occurrence: None)
  Receive Date: 20100621
  Receipt Date: 20100526
  Transmission Date: 20101027
  Serious: No
  Sender: FDA-Public Use
  Company Number: US-JNJFOC-20100510519

PATIENT
  Sex: Male

DRUGS (2)
  1. INVEGA SUSTENNA [Suspect]
     Indication: SCHIZOPHRENIA
     Route: 030
  2. FLUPHENAZINE DECANOATE [Concomitant]

REACTIONS (3)
  - DRUG INEFFECTIVE [None]
  - PRODUCT QUALITY ISSUE [None]
  - PSYCHOTIC DISORDER [None]
